FAERS Safety Report 5028529-6 (Version None)
Quarter: 2006Q2

REPORT INFORMATION
  Report Type: 
  Country: None (occurrence: None)
  Receive Date: 20060617
  Receipt Date: 20060417
  Transmission Date: 20061013
  Serious: Yes (Disabling)
  Sender: FDA-Public Use
  Company Number: US-MERCK-0604USA02656

PATIENT
  Age: 61 Year
  Sex: Female

DRUGS (7)
  1. FOSAMAX [Suspect]
     Indication: OSTEOPOROSIS
     Route: 048
     Dates: start: 20060312, end: 20060402
  2. FOSAMAX [Suspect]
     Route: 048
  3. FOSAMAX [Suspect]
     Indication: OSTEOPENIA
     Route: 048
     Dates: start: 20060312, end: 20060402
  4. FOSAMAX [Suspect]
     Route: 048
  5. ELAVIL [Concomitant]
     Route: 048
  6. VALIUM [Concomitant]
     Route: 048
  7. ZOLOFT [Concomitant]
     Route: 048

REACTIONS (8)
  - ABDOMINAL PAIN UPPER [None]
  - BONE FORMATION DECREASED [None]
  - BONE PAIN [None]
  - DYSPEPSIA [None]
  - ERUCTATION [None]
  - GASTRIC DISORDER [None]
  - MYALGIA [None]
  - OESOPHAGEAL DISORDER [None]
